FAERS Safety Report 6109709-5 (Version None)
Quarter: 2009Q1

REPORT INFORMATION
  Report Type: 
  Country: None (occurrence: None)
  Receive Date: 20090310
  Receipt Date: 20080307
  Transmission Date: 20090719
  Serious: No
  Sender: FDA-Public Use
  Company Number: A0714033A

PATIENT
  Age: 75 Year
  Sex: Male

DRUGS (2)
  1. NICORETTE (MINT) [Suspect]
  2. NICODERM CQ [Suspect]
     Indication: DRUG WITHDRAWAL MAINTENANCE THERAPY
     Dates: start: 20080229

REACTIONS (6)
  - ABDOMINAL DISCOMFORT [None]
  - HYPERHIDROSIS [None]
  - INTENTIONAL DRUG MISUSE [None]
  - IRRITABILITY [None]
  - NERVOUSNESS [None]
  - SENSORY DISTURBANCE [None]
